FAERS Safety Report 7793779-2 (Version None)
Quarter: 2011Q4

REPORT INFORMATION
  Report Type: 
  Country: None (occurrence: None)
  Receive Date: 20111003
  Receipt Date: 20110920
  Transmission Date: 20120403
  Serious: Yes (Other)
  Sender: FDA-Public Use
  Company Number: PHEH2011US04828

PATIENT
  Sex: Male

DRUGS (4)
  1. TASIGNA [Suspect]
     Indication: LEUKAEMIA
     Dosage: 400 MG, BID
     Route: 048
  2. PHENERGAN HCL [Concomitant]
  3. ULORIC [Concomitant]
  4. DILAUDID [Concomitant]

REACTIONS (3)
  - BLISTER [None]
  - SKIN EXFOLIATION [None]
  - RASH PRURITIC [None]
